FAERS Safety Report 6043780-4 (Version None)
Quarter: 2009Q1

REPORT INFORMATION
  Report Type: 
  Country: None (occurrence: None)
  Receive Date: 20090120
  Receipt Date: 20090114
  Transmission Date: 20090719
  Serious: Yes (Death, Hospitalization)
  Sender: FDA-Public Use
  Company Number: PHHY2009JP01574

PATIENT
  Age: 50 Year
  Sex: Male

DRUGS (11)
  1. TEGRETOL [Suspect]
     Indication: EPILEPSY
     Dosage: 400 MG
     Route: 048
     Dates: end: 20050112
  2. PHENYTOIN [Suspect]
     Indication: EPILEPSY
     Dosage: 200 MG
     Route: 048
     Dates: end: 20050112
  3. VALPROATE SODIUM [Suspect]
     Dosage: 2000 MG
     Route: 048
     Dates: end: 20050112
  4. ZONISAMIDE [Suspect]
     Dosage: 400 MG
     Route: 048
     Dates: end: 20050112
  5. MAGNESIUM OXIDE [Concomitant]
     Dosage: 1.5 MG
     Route: 048
  6. CEFTRIAXONE SODIUM [Concomitant]
     Indication: PNEUMONIA
     Dosage: UNK
     Dates: start: 20041101
  7. IMIPENEM [Concomitant]
     Indication: PNEUMONIA
     Dosage: 1 G
     Dates: start: 20041101, end: 20050104
  8. MINOCYCLINE HYDROCHLORIDE [Concomitant]
     Indication: PNEUMONIA
     Dosage: UNK
     Dates: start: 20041101
  9. VITAMEDIN CAPSULE [Concomitant]
     Dosage: 500 MG
  10. VITACIMIN [Concomitant]
     Dosage: 500 MG
     Dates: start: 20041229
  11. PANTOL [Concomitant]
     Dosage: 500 MG
     Dates: start: 20041229

REACTIONS (5)
  - ANAEMIA MEGALOBLASTIC [None]
  - BLOOD LACTATE DEHYDROGENASE INCREASED [None]
  - CONVULSION [None]
  - DISSEMINATED INTRAVASCULAR COAGULATION [None]
  - PNEUMONIA [None]
